FAERS Safety Report 25089680 (Version 1)
Quarter: 2025Q1

REPORT INFORMATION
  Report Type: Spontaneous
  Country: US (occurrence: US)
  Receive Date: 20250318
  Receipt Date: 20250318
  Transmission Date: 20250408
  Serious: No
  Sender: ROCHE
  Company Number: US-ROCHE-10000232006

PATIENT
  Sex: Female
  Weight: 72.6 kg

DRUGS (4)
  1. OCREVUS [Suspect]
     Active Substance: OCRELIZUMAB
     Indication: Product used for unknown indication
     Route: 065
     Dates: start: 2018, end: 202107
  2. OCREVUS [Suspect]
     Active Substance: OCRELIZUMAB
     Route: 065
     Dates: start: 2022
  3. CORTICOTROPIN [Suspect]
     Active Substance: CORTICOTROPIN
     Indication: Multiple sclerosis
     Route: 030
  4. BAFIERTAM [Concomitant]
     Active Substance: MONOMETHYL FUMARATE

REACTIONS (3)
  - Contraindicated product administered [Unknown]
  - Accident [Unknown]
  - Hepatic function abnormal [Unknown]
